FAERS Safety Report 18386802 (Version 1)
Quarter: 2020Q4

REPORT INFORMATION
  Report Type: Spontaneous
  Country: US (occurrence: US)
  Receive Date: 20201014
  Receipt Date: 20201014
  Transmission Date: 20210114
  Serious: Yes (Death)
  Sender: FDA-Public Use
  Company Number: None

PATIENT
  Age: 81 Year
  Sex: Male
  Weight: 85.6 kg

DRUGS (16)
  1. CARVEDILOL. [Concomitant]
     Active Substance: CARVEDILOL
  2. CEFTAROLINE [Concomitant]
     Active Substance: CEFTAROLINE
  3. REMDESIVIR SOLUTION 100MG VIAL [Suspect]
     Active Substance: REMDESIVIR
     Indication: COVID-19 PNEUMONIA
     Route: 042
     Dates: start: 20200821, end: 20200821
  4. ACETAMINOPHEN. [Concomitant]
     Active Substance: ACETAMINOPHEN
  5. ENOXAPARIN [Concomitant]
     Active Substance: ENOXAPARIN
  6. REMDESIVIR SOLUTION 100MG VIAL [Suspect]
     Active Substance: REMDESIVIR
     Indication: COVID-19 PNEUMONIA
     Dosage: ?          OTHER FREQUENCY:Q 24 HR;?
     Route: 042
     Dates: start: 20200825, end: 20200825
  7. CLOPIDOGREL [Concomitant]
     Active Substance: CLOPIDOGREL BISULFATE
  8. HALOPERIDOL LACTATE. [Concomitant]
     Active Substance: HALOPERIDOL LACTATE
  9. HYDROMORPHONE [Concomitant]
     Active Substance: HYDROMORPHONE
  10. PYRIDOXINE (VITAMIN B6) [Concomitant]
     Active Substance: PYRIDOXINE HYDROCHLORIDE
  11. ASPIRIN. [Concomitant]
     Active Substance: ASPIRIN
  12. DEXAMETHASONE. [Concomitant]
     Active Substance: DEXAMETHASONE
  13. ALBUTEROL. [Concomitant]
     Active Substance: ALBUTEROL
  14. ONDANSETRON [Concomitant]
     Active Substance: ONDANSETRON
  15. VANCOMYCIN [Concomitant]
     Active Substance: VANCOMYCIN
  16. INSULIN ASPART [Concomitant]
     Active Substance: INSULIN ASPART

REACTIONS (2)
  - Cardio-respiratory arrest [None]
  - Condition aggravated [None]

NARRATIVE: CASE EVENT DATE: 20200901
